FAERS Safety Report 25444726 (Version 1)
Quarter: 2025Q2

REPORT INFORMATION
  Report Type: Spontaneous
  Country: FR (occurrence: FR)
  Receive Date: 20250617
  Receipt Date: 20250617
  Transmission Date: 20250716
  Serious: Yes (Hospitalization)
  Sender: ROCHE
  Company Number: None

PATIENT
  Age: 48 Year
  Sex: Female
  Weight: 78 kg

DRUGS (2)
  1. TOCILIZUMAB [Suspect]
     Active Substance: TOCILIZUMAB
     Indication: Rheumatoid arthritis
     Dosage: 162 MG/ SEMAINE
     Route: 058
     Dates: start: 20241210
  2. DULOXETINE [Concomitant]
     Active Substance: DULOXETINE
     Indication: Rheumatoid arthritis
     Dosage: POSOLOGIES CROISSANTES (30MG/J PDT 1 SEMAINE, PUIS 60MG/J PDT 1 SEMAINE, 90MG/J PDT 1 SEMAINE PUIS 1
     Route: 050
     Dates: start: 20241215

REACTIONS (3)
  - Pruritus [Recovered/Resolved]
  - Haemoptysis [Recovered/Resolved]
  - Injection site reaction [Recovered/Resolved]

NARRATIVE: CASE EVENT DATE: 20250201
